FAERS Safety Report 4358864-6 (Version None)
Quarter: 2004Q2

REPORT INFORMATION
  Report Type: 
  Country: None (occurrence: None)
  Receive Date: 20040512
  Receipt Date: 20040430
  Transmission Date: 20050107
  Serious: Yes (Hospitalization)
  Sender: FDA-Public Use
  Company Number: 2004050001

PATIENT
  Age: 7 Year
  Sex: Female
  Weight: 24 kg

DRUGS (4)
  1. TALOXA SUSPENSION 600 MG/5 ML (FELBAMATE) [Suspect]
     Indication: EPILEPSY
     Dosage: 2 ML TID, PO
     Route: 048
     Dates: start: 20040227, end: 20040326
  2. DEPAKENE [Suspect]
     Indication: EPILEPSY
     Dosage: BID, PO
     Route: 048
     Dates: start: 20030501
  3. LAMICTAL [Suspect]
     Indication: EPILEPSY
     Dosage: 20 MG QD, PO
     Route: 048
     Dates: start: 20040126, end: 20040402
  4. EPITOMAX (CARBAMAZEPINE) [Suspect]
     Indication: EPILEPSY
     Dosage: PO
     Route: 048
     Dates: start: 20040126, end: 20040204

REACTIONS (3)
  - DRUG INEFFECTIVE [None]
  - LEUKOPENIA [None]
  - NEUTROPENIA [None]
